FAERS Safety Report 25065073 (Version 1)
Quarter: 2025Q1

REPORT INFORMATION
  Report Type: Spontaneous
  Country: US (occurrence: US)
  Receive Date: 20250311
  Receipt Date: 20250311
  Transmission Date: 20250408
  Serious: No
  Sender: BIOGEN
  Company Number: US-BIOGEN-2025BI01303408

PATIENT
  Sex: Female

DRUGS (17)
  1. AVONEX [Suspect]
     Active Substance: INTERFERON BETA-1A
     Indication: Relapsing-remitting multiple sclerosis
     Route: 050
     Dates: start: 2000
  2. AVONEX [Suspect]
     Active Substance: INTERFERON BETA-1A
  3. AVONEX [Suspect]
     Active Substance: INTERFERON BETA-1A
  4. AVONEX [Suspect]
     Active Substance: INTERFERON BETA-1A
  5. AVONEX [Suspect]
     Active Substance: INTERFERON BETA-1A
  6. AVONEX [Suspect]
     Active Substance: INTERFERON BETA-1A
  7. AVONEX [Suspect]
     Active Substance: INTERFERON BETA-1A
  8. AVONEX [Suspect]
     Active Substance: INTERFERON BETA-1A
  9. AVONEX [Suspect]
     Active Substance: INTERFERON BETA-1A
  10. AVONEX [Suspect]
     Active Substance: INTERFERON BETA-1A
  11. AVONEX [Suspect]
     Active Substance: INTERFERON BETA-1A
  12. AVONEX [Suspect]
     Active Substance: INTERFERON BETA-1A
  13. AVONEX [Suspect]
     Active Substance: INTERFERON BETA-1A
  14. OCREVUS [Concomitant]
     Active Substance: OCRELIZUMAB
     Indication: Product used for unknown indication
     Route: 050
  15. REBIF [Concomitant]
     Active Substance: INTERFERON BETA-1A
     Indication: Product used for unknown indication
     Route: 050
  16. COPAXONE [Concomitant]
     Active Substance: GLATIRAMER ACETATE
     Indication: Product used for unknown indication
     Route: 050
  17. ZEPOSIA [Concomitant]
     Active Substance: OZANIMOD HYDROCHLORIDE
     Indication: Product used for unknown indication
     Route: 050

REACTIONS (1)
  - Multiple sclerosis [Unknown]
